FAERS Safety Report 18625629 (Version 1)
Quarter: 2020Q4

REPORT INFORMATION
  Report Type: Spontaneous
  Country: US (occurrence: US)
  Receive Date: 20201216
  Receipt Date: 20201216
  Transmission Date: 20210114
  Serious: No
  Sender: FDA-Public Use
  Company Number: US-GE HEALTHCARE LIFE SCIENCES-2020CSU005722

PATIENT
  Age: 50 Year
  Sex: Female

DRUGS (3)
  1. DATSCAN [Suspect]
     Active Substance: IODINE\IOFLUPANE I-123
     Indication: DIAGNOSTIC PROCEDURE
     Dosage: 185 MBQ (5 MCI), SINGLE
     Route: 042
     Dates: start: 20201103, end: 20201103
  2. DATSCAN [Suspect]
     Active Substance: IODINE\IOFLUPANE I-123
     Indication: TREMOR
  3. IOFLUPANE (123I) [Concomitant]
     Active Substance: IOFLUPANE I-123
     Indication: PARKINSON^S DISEASE
     Dosage: UNK, SINGLE
     Route: 042
     Dates: start: 20201103, end: 20201103

REACTIONS (1)
  - Nausea [Recovered/Resolved]

NARRATIVE: CASE EVENT DATE: 20201103
